FAERS Safety Report 19395273 (Version 1)
Quarter: 2021Q2

REPORT INFORMATION
  Report Type: Spontaneous
  Country: US (occurrence: US)
  Receive Date: 20210609
  Receipt Date: 20210609
  Transmission Date: 20210717
  Serious: Yes (Other)
  Sender: FDA-Public Use
  Company Number: US-GLAXOSMITHKLINE-US2021GSK122378

PATIENT
  Sex: Male

DRUGS (14)
  1. ZANTAC [Suspect]
     Active Substance: RANITIDINE HYDROCHLORIDE
     Dosage: 150 MG,WILL SUPPLEMENT
     Route: 065
     Dates: start: 200601, end: 201101
  2. ZANTAC [Suspect]
     Active Substance: RANITIDINE HYDROCHLORIDE
     Dosage: 150 MG,WILL SUPPLEMENT
     Route: 065
     Dates: start: 200601, end: 201101
  3. RANITIDINE. [Suspect]
     Active Substance: RANITIDINE
     Indication: HYPERCHLORHYDRIA
     Dosage: 75 MG,WILL SUPPLEMENT
     Route: 065
     Dates: start: 200601, end: 201101
  4. ZANTAC [Suspect]
     Active Substance: RANITIDINE HYDROCHLORIDE
     Indication: HYPERCHLORHYDRIA
     Dosage: 75 MG,WILL SUPPLEMENT
     Route: 065
     Dates: start: 200601, end: 201101
  5. ZANTAC [Suspect]
     Active Substance: RANITIDINE HYDROCHLORIDE
     Indication: HYPERCHLORHYDRIA
     Dosage: 75 MG,WILL SUPPLEMENT
     Route: 065
     Dates: start: 200601, end: 201101
  6. RANITIDINE. [Suspect]
     Active Substance: RANITIDINE
     Dosage: 150 MG,WILL SUPPLEMENT
     Route: 065
     Dates: start: 200601, end: 201101
  7. RANITIDINE. [Suspect]
     Active Substance: RANITIDINE
     Indication: HYPERCHLORHYDRIA
     Dosage: 75 MG,WILL SUPPLEMENT
     Route: 065
     Dates: start: 200601, end: 201101
  8. RANITIDINE. [Suspect]
     Active Substance: RANITIDINE
     Dosage: 150 MG,WILL SUPPLEMENT
     Route: 065
     Dates: start: 200601, end: 201101
  9. ZANTAC [Suspect]
     Active Substance: RANITIDINE HYDROCHLORIDE
     Dosage: 150 MG,WILL SUPPLEMENT
     Route: 065
     Dates: start: 200601, end: 201101
  10. ZANTAC [Suspect]
     Active Substance: RANITIDINE HYDROCHLORIDE
     Indication: HYPERCHLORHYDRIA
     Dosage: 75 MG,WILL SUPPLEMENT
     Route: 065
     Dates: start: 200601, end: 201101
  11. RANITIDINE CAPSULE [Suspect]
     Active Substance: RANITIDINE
     Dosage: 150 MG,WILL SUPPLEMENT
     Route: 065
     Dates: start: 200601, end: 201101
  12. RANITIDINE. [Suspect]
     Active Substance: RANITIDINE
     Indication: HYPERCHLORHYDRIA
     Dosage: 75 MG,WILL SUPPLEMENT
     Route: 065
     Dates: start: 200601, end: 201101
  13. RANITIDINE CAPSULE [Suspect]
     Active Substance: RANITIDINE
     Indication: HYPERCHLORHYDRIA
     Dosage: 75 MG,WILL SUPPLEMENT
     Route: 065
     Dates: start: 200601, end: 201101
  14. RANITIDINE. [Suspect]
     Active Substance: RANITIDINE
     Dosage: 150 MG,WILL SUPPLEMENT
     Route: 065
     Dates: start: 200601, end: 201101

REACTIONS (2)
  - Colorectal cancer [Unknown]
  - Bladder cancer [Unknown]
